FAERS Safety Report 18601695 (Version 4)
Quarter: 2021Q2

REPORT INFORMATION
  Report Type: Report from Study
  Country: AU (occurrence: AU)
  Receive Date: 20201210
  Receipt Date: 20210531
  Transmission Date: 20210717
  Serious: Yes (Other)
  Sender: FDA-Public Use
  Company Number: NVSC2020AU324255

PATIENT
  Age: 74 Year
  Sex: Female

DRUGS (2)
  1. BEOVU [Suspect]
     Active Substance: BROLUCIZUMAB-DBLL
     Indication: PRODUCT USED FOR UNKNOWN INDICATION
     Dosage: UNK
     Route: 065
  2. BEOVU [Suspect]
     Active Substance: BROLUCIZUMAB-DBLL
     Dosage: UNK
     Route: 065

REACTIONS (6)
  - Keratic precipitates [Unknown]
  - Benign neoplasm of adrenal gland [Unknown]
  - Eye inflammation [Unknown]
  - Vitritis [Recovered/Resolved]
  - Crohn^s disease [Unknown]
  - Eye oedema [Unknown]

NARRATIVE: CASE EVENT DATE: 20201202
